FAERS Safety Report 6117119-X (Version None)
Quarter: 2009Q1

REPORT INFORMATION
  Report Type: 
  Country: None (occurrence: None)
  Receive Date: 20090314
  Receipt Date: 20090106
  Transmission Date: 20090719
  Serious: No
  Sender: FDA-Public Use
  Company Number: US-ABBOTT-09P-163-0496385-00

PATIENT
  Sex: Female

DRUGS (2)
  1. HUMIRA [Suspect]
     Indication: CROHN'S DISEASE
     Dates: start: 20081212
  2. FLAGYL [Concomitant]
     Indication: DRUG USE FOR UNKNOWN INDICATION
     Dates: start: 20081212, end: 20090102

REACTIONS (12)
  - ANORECTAL DISCOMFORT [None]
  - ARTHRALGIA [None]
  - CANDIDIASIS [None]
  - EYE IRRITATION [None]
  - LIP DRY [None]
  - LIP EXFOLIATION [None]
  - LIP SWELLING [None]
  - OROPHARYNGEAL PAIN [None]
  - PERIPROCTITIS [None]
  - VULVAL OEDEMA [None]
  - VULVOVAGINAL BURNING SENSATION [None]
  - WHITE BLOOD CELL COUNT INCREASED [None]
